FAERS Safety Report 9053627 (Version 1)
Quarter: 2013Q1

REPORT INFORMATION
  Report Type: Spontaneous
  Country: GR (occurrence: GR)
  Receive Date: 20130208
  Receipt Date: 20130208
  Transmission Date: 20140127
  Serious: Yes (Other)
  Sender: FDA-Public Use
  Company Number: PHHY2013GR011783

PATIENT
  Age: 64 Year
  Sex: Male

DRUGS (1)
  1. EXELON PATCH [Suspect]
     Dosage: 9.5 MG, UNK
     Route: 062

REACTIONS (2)
  - Megacolon [Unknown]
  - Epilepsy [Unknown]
